FAERS Safety Report 25793781 (Version 8)
Quarter: 2025Q4

REPORT INFORMATION
  Report Type: Spontaneous
  Country: US (occurrence: US)
  Receive Date: 20250912
  Receipt Date: 20251217
  Transmission Date: 20260118
  Serious: Yes (Hospitalization)
  Sender: ROCHE
  Company Number: US-ROCHE-10000382543

PATIENT
  Sex: Female

DRUGS (10)
  1. ACTEMRA ACTPEN [Suspect]
     Active Substance: TOCILIZUMAB
     Indication: Idiopathic pulmonary fibrosis
     Dosage: STRENGTH: 162MG/0.9M
     Route: 058
     Dates: start: 202506
  2. ACTEMRA ACTPEN [Suspect]
     Active Substance: TOCILIZUMAB
     Indication: Systemic sclerosis pulmonary
  3. ACTEMRA ACTPEN [Suspect]
     Active Substance: TOCILIZUMAB
     Indication: Interstitial lung disease
  4. TADALAFIL [Concomitant]
     Active Substance: TADALAFIL
  5. LASIX [Concomitant]
     Active Substance: FUROSEMIDE
  6. SPIRONOLACTONE [Concomitant]
     Active Substance: SPIRONOLACTONE
  7. TYVASO DPI [Concomitant]
     Active Substance: TREPROSTINIL
  8. TYVASO DPI [Concomitant]
     Active Substance: TREPROSTINIL
  9. TYVASO DPI [Concomitant]
     Active Substance: TREPROSTINIL
  10. TYVASO DPI [Concomitant]
     Active Substance: TREPROSTINIL

REACTIONS (7)
  - Swelling [Unknown]
  - Fluid retention [Not Recovered/Not Resolved]
  - Weight increased [Unknown]
  - Peripheral swelling [Unknown]
  - Oedema [Unknown]
  - Joint swelling [Unknown]
  - Polyuria [Unknown]
